FAERS Safety Report 16958948 (Version 2)
Quarter: 2020Q1

REPORT INFORMATION
  Report Type: Report from Study
  Country: GB (occurrence: GB)
  Receive Date: 20191024
  Receipt Date: 20200117
  Transmission Date: 20200409
  Serious: Yes (Other)
  Sender: FDA-Public Use
  Company Number: PHHY2019GB039673

PATIENT
  Sex: Female

DRUGS (2)
  1. GILENYA [Suspect]
     Active Substance: FINGOLIMOD HYDROCHLORIDE
     Indication: MULTIPLE SCLEROSIS
     Dosage: 0.5 MG, QD
     Route: 048
     Dates: start: 20190114
  2. GILENYA [Suspect]
     Active Substance: FINGOLIMOD HYDROCHLORIDE
     Dosage: (THREE DAYS PER WEEK - MON, WED AND FRI)
     Route: 065

REACTIONS (7)
  - Neutrophil count decreased [Recovering/Resolving]
  - Vision blurred [Unknown]
  - Lymphocyte count decreased [Recovering/Resolving]
  - Visual impairment [Unknown]
  - Liver function test increased [Unknown]
  - Prescribed underdose [Unknown]
  - Fatigue [Unknown]
